FAERS Safety Report 8609394-4 (Version None)
Quarter: 2012Q3

REPORT INFORMATION
  Report Type: 
  Country: None (occurrence: None)
  Receive Date: 20120821
  Receipt Date: 20120809
  Transmission Date: 20120928
  Serious: Yes (Other)
  Sender: FDA-Public Use
  Company Number: JP-UCBSA-060972

PATIENT
  Sex: Male

DRUGS (2)
  1. CARBAMAZEPINE [Concomitant]
     Dosage: DAILY DOSE : 300 MG
     Route: 048
  2. KEPPRA [Suspect]
     Indication: EPILEPSY
     Route: 048

REACTIONS (2)
  - WHITE BLOOD CELL COUNT DECREASED [None]
  - NEUTROPHIL COUNT DECREASED [None]
